FAERS Safety Report 7767951-1 (Version None)
Quarter: 2011Q3

REPORT INFORMATION
  Report Type: 
  Country: None (occurrence: None)
  Receive Date: 20110922
  Receipt Date: 20100914
  Transmission Date: 20111222
  Serious: Yes (Hospitalization)
  Sender: FDA-Public Use
  Company Number: US-ASTRAZENECA-2007UW22621

PATIENT
  Age: 10 Year
  Sex: Female
  Weight: 99.8 kg

DRUGS (86)
  1. SEROQUEL [Suspect]
     Dosage: 25 TO 300 MG
     Route: 048
     Dates: start: 20000124, end: 20040922
  2. SEROQUEL [Suspect]
     Dosage: 25 MG - 200 MG
     Route: 048
     Dates: start: 20050525, end: 20060120
  3. SEROQUEL [Suspect]
     Dosage: 25 MG - 200 MG
     Route: 048
     Dates: start: 20050525, end: 20060120
  4. RISPERDAL [Concomitant]
     Indication: EMOTIONAL DISORDER
     Dosage: 0.5 MG - 1 MG
     Dates: start: 20030417, end: 20040513
  5. RISPERDAL [Concomitant]
     Indication: ATTENTION DEFICIT/HYPERACTIVITY DISORDER
     Dosage: 0.5 MG - 1 MG
     Dates: start: 20030417, end: 20040513
  6. MOTRIN [Concomitant]
  7. TOPAMAX [Concomitant]
  8. KAOPECTATE [Concomitant]
  9. NYSTATIN [Concomitant]
  10. SEROQUEL [Suspect]
     Indication: SCHIZOAFFECTIVE DISORDER
     Dosage: 25 MG TO 400 MG
     Route: 048
     Dates: start: 19971211, end: 20040928
  11. SEROQUEL [Suspect]
     Indication: AGITATION
     Dosage: 25 MG TO 400 MG
     Route: 048
     Dates: start: 19971211, end: 20040928
  12. SEROQUEL [Suspect]
     Dosage: 25 TO 300 MG
     Route: 048
     Dates: start: 20000124, end: 20040924
  13. SEROQUEL [Suspect]
     Dosage: 25 TO 300 MG
     Route: 048
     Dates: start: 20000124, end: 20040922
  14. LAMICTAL [Concomitant]
     Dosage: 25-200 MG
     Dates: start: 20040928, end: 20051116
  15. ALLEGRA [Concomitant]
  16. BENADRYL [Concomitant]
  17. SEROQUEL [Suspect]
     Indication: PERSONALITY DISORDER
     Dosage: 25 MG TO 400 MG
     Route: 048
     Dates: start: 19971211, end: 20040928
  18. SEROQUEL [Suspect]
     Indication: DEPRESSION
     Dosage: 25 MG TO 400 MG
     Route: 048
     Dates: start: 19971211, end: 20040928
  19. SEROQUEL [Suspect]
     Dosage: 25 TO 300 MG
     Route: 048
     Dates: start: 20000124, end: 20040922
  20. SEROQUEL [Suspect]
     Dosage: 25 TO 300 MG
     Route: 048
     Dates: start: 20000124, end: 20040922
  21. SEROQUEL [Suspect]
     Dosage: 25 MG - 200 MG
     Route: 048
     Dates: start: 20050525, end: 20060120
  22. SEROQUEL [Suspect]
     Dosage: 25 MG - 200 MG
     Route: 048
     Dates: start: 20050525, end: 20060120
  23. GEODON [Concomitant]
     Dates: start: 20040922, end: 20071023
  24. ZOLOFT [Concomitant]
     Dates: start: 20040126, end: 20040921
  25. HUMULIN 70/30 [Concomitant]
  26. TAVIST [Concomitant]
  27. RIOPAN [Concomitant]
  28. PROZAC [Concomitant]
  29. NOVOLOG [Concomitant]
  30. BUSPIRONE HCL [Concomitant]
  31. PREVACID [Concomitant]
  32. SEROQUEL [Suspect]
     Indication: BIPOLAR DISORDER
     Dosage: 25 MG TO 400 MG
     Route: 048
     Dates: start: 19971211, end: 20040928
  33. SEROQUEL [Suspect]
     Dosage: 25 TO 300 MG
     Route: 048
     Dates: start: 20000124, end: 20040924
  34. SEROQUEL [Suspect]
     Dosage: 25 TO 300 MG
     Route: 048
     Dates: start: 20000124, end: 20040922
  35. SEROQUEL [Suspect]
     Dosage: 25 TO 300 MG
     Route: 048
     Dates: start: 20000124, end: 20040922
  36. SEROQUEL [Suspect]
     Dosage: 25 MG - 200 MG
     Route: 048
     Dates: start: 20050525, end: 20060120
  37. RISPERDAL [Concomitant]
     Dates: start: 20040101, end: 20050101
  38. RISPERDAL [Concomitant]
     Dates: start: 20040101, end: 20050101
  39. NAPROSYN [Concomitant]
  40. CHOLEST OFF [Concomitant]
  41. PROCARDIA [Concomitant]
  42. SUDAFED 12 HOUR [Concomitant]
  43. SEROQUEL [Suspect]
     Dosage: 25 MG - 200 MG
     Route: 048
     Dates: start: 20050525, end: 20060120
  44. RISPERDAL [Concomitant]
     Indication: SCHIZOAFFECTIVE DISORDER
     Dosage: 0.5 MG - 1 MG
     Dates: start: 20030417, end: 20040513
  45. ADDERALL 5 [Concomitant]
     Dosage: 10-20 MG
     Dates: start: 20000511, end: 20021216
  46. WELLBUTRIN [Concomitant]
     Dates: start: 19990111, end: 19991105
  47. ZYPREXA ZYDIS [Concomitant]
  48. FOLIC ACID [Concomitant]
  49. ROBITUSSIN DM [Concomitant]
  50. LANTUS [Concomitant]
  51. CARAFATE [Concomitant]
  52. PROMETH HCL [Concomitant]
  53. PROLIXIN DECANOATE [Concomitant]
  54. SEROQUEL [Suspect]
     Indication: ANXIETY
     Dosage: 25 MG TO 400 MG
     Route: 048
     Dates: start: 19971211, end: 20040928
  55. SEROQUEL [Suspect]
     Dosage: 25 TO 300 MG
     Route: 048
     Dates: start: 20000124, end: 20040924
  56. SEROQUEL [Suspect]
     Dosage: 25 TO 300 MG
     Route: 048
     Dates: start: 20000124, end: 20040924
  57. SEROQUEL [Suspect]
     Dosage: 25 TO 300 MG
     Route: 048
     Dates: start: 20000124, end: 20040922
  58. SEROQUEL [Suspect]
     Dosage: 25 TO 300 MG
     Route: 048
     Dates: start: 20000124, end: 20040922
  59. RISPERDAL [Concomitant]
     Dates: start: 20040101, end: 20050101
  60. CYMBALTA [Concomitant]
     Dosage: 30-60 MG
     Dates: start: 20050627, end: 20050802
  61. CARBINOXAMINE MALEATE [Concomitant]
  62. SEROQUEL [Suspect]
     Indication: EMOTIONAL DISORDER
     Dosage: 25 MG TO 400 MG
     Route: 048
     Dates: start: 19971211, end: 20040928
  63. SEROQUEL [Suspect]
     Dosage: 25 TO 300 MG
     Route: 048
     Dates: start: 20000124, end: 20040924
  64. SEROQUEL [Suspect]
     Dosage: 25 TO 300 MG
     Route: 048
     Dates: start: 20000124, end: 20040924
  65. ABILIFY [Concomitant]
     Dosage: 15-30 MG
     Dates: start: 20000202, end: 20051116
  66. HALDOL [Concomitant]
     Dosage: 2 MG -5 MG
     Dates: start: 20000929, end: 20050523
  67. RISPERDAL [Concomitant]
     Dates: start: 20040101, end: 20050101
  68. GLUCOPHAGE [Concomitant]
  69. DILANTIN [Concomitant]
  70. INDERAL [Concomitant]
  71. MYLANTA [Concomitant]
  72. VALIUM [Concomitant]
  73. SERZONE [Concomitant]
  74. NORTREL 7/7/7 [Concomitant]
  75. TIGAN [Concomitant]
  76. SEROQUEL [Suspect]
     Indication: ATTENTION DEFICIT/HYPERACTIVITY DISORDER
     Dosage: 25 MG TO 400 MG
     Route: 048
     Dates: start: 19971211, end: 20040928
  77. SEROQUEL [Suspect]
     Dosage: 25 TO 300 MG
     Route: 048
     Dates: start: 20000124, end: 20040924
  78. SEROQUEL [Suspect]
     Dosage: 25 TO 300 MG
     Route: 048
     Dates: start: 20000124, end: 20040924
  79. SEROQUEL [Suspect]
     Dosage: 25 MG - 200 MG
     Route: 048
     Dates: start: 20050525, end: 20060120
  80. SEROQUEL [Suspect]
     Dosage: 25 MG - 200 MG
     Route: 048
     Dates: start: 20050525, end: 20060120
  81. RISPERDAL [Concomitant]
     Indication: BIPOLAR DISORDER
     Dosage: 0.5 MG - 1 MG
     Dates: start: 20030417, end: 20040513
  82. BUSPAR [Concomitant]
  83. DEPO-PROVERA [Concomitant]
  84. IMIPRAMINE HCL [Concomitant]
  85. STELAZINE [Concomitant]
  86. RITALIN [Concomitant]

REACTIONS (3)
  - TYPE 2 DIABETES MELLITUS [None]
  - OBESITY [None]
  - DIABETES MELLITUS [None]
